FAERS Safety Report 5768960-4 (Version None)
Quarter: 2008Q2

REPORT INFORMATION
  Report Type: 
  Country: None (occurrence: None)
  Receive Date: 20080610
  Receipt Date: 20080603
  Transmission Date: 20081010
  Serious: Yes (Life-Threatening, Hospitalization)
  Sender: FDA-Public Use
  Company Number: URSO-2008-027

PATIENT
  Age: 75 Year
  Sex: Male

DRUGS (7)
  1. URSO 250 [Suspect]
     Indication: PYREXIA
     Dosage: 600 MG ORAL
     Route: 048
     Dates: start: 20071222, end: 20071224
  2. ACETAMINOPHEN [Suspect]
     Indication: PYREXIA
     Dosage: 3 TAB ORAL
     Route: 048
     Dates: start: 20071210, end: 20071214
  3. OZEX (TOSUFLOXACINTOSILATE) [Suspect]
     Indication: PYREXIA
     Dosage: 3 TAB ORAL
     Route: 048
     Dates: start: 20071210, end: 20071214
  4. LEVOFLOXACIN [Suspect]
     Indication: PYREXIA
     Dosage: 3 TAB ORAL
     Route: 048
     Dates: start: 20071222, end: 20071224
  5. METHYLPREDNISOLONE [Concomitant]
  6. MAXIPIME (CEFEPIME DIHYDROCHLORIDE) [Concomitant]
  7. MINOCYCLINE HCL [Concomitant]

REACTIONS (1)
  - INTERSTITIAL LUNG DISEASE [None]
